FAERS Safety Report 25424981 (Version 4)
Quarter: 2025Q3

REPORT INFORMATION
  Report Type: Report from Study
  Country: AU (occurrence: AU)
  Receive Date: 20250611
  Receipt Date: 20250827
  Transmission Date: 20251021
  Serious: Yes (Life-Threatening, Hospitalization)
  Sender: PFIZER
  Company Number: AU-PFIZER INC-PV202500062045

PATIENT
  Age: 73 Year
  Weight: 62.5 kg

DRUGS (13)
  1. FLUOROURACIL [Suspect]
     Active Substance: FLUOROURACIL
     Indication: Adenocarcinoma pancreas
     Route: 042
     Dates: start: 20250507, end: 20250509
  2. LEUCOVORIN CALCIUM [Suspect]
     Active Substance: LEUCOVORIN CALCIUM
     Indication: Adenocarcinoma pancreas
     Route: 042
     Dates: start: 20250507, end: 20250507
  3. OXALIPLATIN [Suspect]
     Active Substance: OXALIPLATIN
     Indication: Adenocarcinoma pancreas
     Route: 042
     Dates: start: 20250507, end: 20250507
  4. IRINOTECAN HYDROCHLORIDE [Suspect]
     Active Substance: IRINOTECAN HYDROCHLORIDE
     Indication: Adenocarcinoma pancreas
     Route: 042
     Dates: start: 20250507, end: 20250507
  5. INTISMERAN AUTOGENE [Suspect]
     Active Substance: INTISMERAN AUTOGENE
     Indication: Adenocarcinoma pancreas
     Dosage: 1000 UG, Q3WK
     Route: 030
     Dates: start: 20250416
  6. DAIVOBET [Concomitant]
     Active Substance: BETAMETHASONE DIPROPIONATE\CALCIPOTRIENE
     Dates: start: 2010
  7. INSULIN GLARGINE [Concomitant]
     Active Substance: INSULIN GLARGINE
     Dates: start: 2024
  8. MOMETASONE FUROATE [Concomitant]
     Active Substance: MOMETASONE FUROATE
     Dates: start: 2010
  9. STELARA [Concomitant]
     Active Substance: USTEKINUMAB
     Dates: start: 2010, end: 202409
  10. CREON [Concomitant]
     Active Substance: PANCRELIPASE AMYLASE\PANCRELIPASE LIPASE\PANCRELIPASE PROTEASE
     Dates: start: 20240325
  11. CONCORD SUNCHIH GPSP 2 IN 1 [Concomitant]
     Dates: start: 202408, end: 20250415
  12. NOVORAPID [Concomitant]
     Active Substance: INSULIN ASPART
     Dates: start: 202411
  13. MINERAL OIL\PETROLATUM [Concomitant]
     Active Substance: MINERAL OIL\PETROLATUM
     Dates: start: 202501

REACTIONS (6)
  - Sepsis [Recovered/Resolved]
  - Dizziness [Recovered/Resolved]
  - Delirium [Recovered/Resolved]
  - Portal vein thrombosis [Not Recovered/Not Resolved]
  - Gastrointestinal haemorrhage [Recovered/Resolved]
  - Colitis [Recovered/Resolved]

NARRATIVE: CASE EVENT DATE: 20250510
